FAERS Safety Report 4319786-X (Version None)
Quarter: 2004Q1

REPORT INFORMATION
  Report Type: 
  Country: None (occurrence: None)
  Receive Date: 20040317
  Receipt Date: 20040304
  Transmission Date: 20041129
  Serious: Yes (Other)
  Sender: FDA-Public Use
  Company Number: HQWYE611805MAR04

PATIENT
  Age: 28 Year
  Sex: Female

DRUGS (1)
  1. EFFEXOR [Suspect]
     Dosage: ORAL
     Route: 048

REACTIONS (4)
  - HOMICIDAL IDEATION [None]
  - PYROMANIA [None]
  - RESPIRATORY FUME INHALATION DISORDER [None]
  - SCREAMING [None]
